FAERS Safety Report 8297552-0 (Version None)
Quarter: 2012Q2

REPORT INFORMATION
  Report Type: 
  Country: None (occurrence: None)
  Receive Date: 20120419
  Receipt Date: 20120411
  Transmission Date: 20120825
  Serious: Yes (Other)
  Sender: FDA-Public Use
  Company Number: PHHY2012US031956

PATIENT

DRUGS (2)
  1. LAPATINIB [Suspect]
     Dosage: 1500 MG/ DAY
     Route: 065
  2. LETROZOLE [Suspect]
     Indication: BREAST CANCER
     Dosage: 2.5 MG/ DAY
     Route: 065

REACTIONS (1)
  - NAIL DISORDER [None]
